FAERS Safety Report 7166789-6 (Version None)
Quarter: 2010Q4

REPORT INFORMATION
  Report Type: 
  Country: None (occurrence: None)
  Receive Date: 20101216
  Receipt Date: 20101206
  Transmission Date: 20110411
  Serious: Yes (Hospitalization)
  Sender: FDA-Public Use
  Company Number: SE-NAPPMUNDI-GBR-2010-0007372

PATIENT
  Sex: Female

DRUGS (1)
  1. NORSPAN 5 MIKROGRAM/ TIMME DEPOTPLASTER [Suspect]
     Indication: MUSCULOSKELETAL PAIN
     Dosage: 5 MCG, Q1H
     Route: 062
     Dates: start: 20090901, end: 20100126

REACTIONS (4)
  - DEPRESSION [None]
  - MANIA [None]
  - OBSESSIVE THOUGHTS [None]
  - PSYCHOTIC DISORDER [None]
